FAERS Safety Report 14411053 (Version 3)
Quarter: 2019Q1

REPORT INFORMATION
  Report Type: Spontaneous
  Country: US (occurrence: US)
  Receive Date: 20180119
  Receipt Date: 20190130
  Transmission Date: 20190417
  Serious: Yes (Hospitalization, Disabling, Other)
  Sender: FDA-Public Use
  Company Number: US-JNJFOC-20171118048

PATIENT
  Age: 60 Year
  Sex: Female

DRUGS (1)
  1. INVOKANA [Suspect]
     Active Substance: CANAGLIFLOZIN
     Indication: DIABETES MELLITUS
     Route: 048
     Dates: start: 20140625, end: 20171019

REACTIONS (5)
  - Urosepsis [Unknown]
  - Infection [Unknown]
  - Osteomyelitis [Unknown]
  - Lower limb fracture [Unknown]
  - Leg amputation [Unknown]

NARRATIVE: CASE EVENT DATE: 2015
